FAERS Safety Report 6552146-X (Version None)
Quarter: 2010Q1

REPORT INFORMATION
  Report Type: 
  Country: None (occurrence: None)
  Receive Date: 20100121
  Receipt Date: 20100104
  Transmission Date: 20100710
  Serious: Yes (Other)
  Sender: FDA-Public Use
  Company Number: 2009-00007

PATIENT
  Age: 52 Year
  Sex: Female
  Weight: 67.1324 kg

DRUGS (1)
  1. AVEENO CLEAR COMPLEXION CLEANSER (SALICYLIC ACID) [Suspect]
     Indication: ACNE
     Dosage: TOPICAL
     Route: 061
     Dates: start: 20090909, end: 20090914

REACTIONS (4)
  - EYE PAIN [None]
  - FOREIGN BODY SENSATION IN EYES [None]
  - PHOTOSENSITIVITY REACTION [None]
  - VISUAL IMPAIRMENT [None]
